FAERS Safety Report 21751962 (Version 1)
Quarter: 2022Q4

REPORT INFORMATION
  Report Type: Spontaneous
  Country: FR (occurrence: FR)
  Receive Date: 20221220
  Receipt Date: 20221220
  Transmission Date: 20230113
  Serious: Yes (Other)
  Sender: FDA-Public Use
  Company Number: FR-AFSSAPS-LM20222803

PATIENT
  Age: 60 Year
  Sex: Male
  Weight: 49 kg

DRUGS (5)
  1. IRINOTECAN [Suspect]
     Active Substance: IRINOTECAN
     Indication: Rectal adenocarcinoma
     Dosage: 1 DOSAGE FORM (EVERY 15 DAY)
     Route: 042
     Dates: start: 20220824, end: 20221005
  2. OXALIPLATIN [Suspect]
     Active Substance: OXALIPLATIN
     Indication: Rectal adenocarcinoma
     Dosage: 1 DOSAGE FORM (EVERY 15 DAY)
     Route: 042
     Dates: start: 20220824, end: 20221005
  3. FLUOROURACIL [Suspect]
     Active Substance: FLUOROURACIL
     Indication: Rectal adenocarcinoma
     Dosage: 1 DOSAGE FORM (EVERY 15 DAY)
     Route: 042
     Dates: start: 20220824, end: 20221005
  4. LEUCOVORIN [Suspect]
     Active Substance: LEUCOVORIN
     Indication: Rectal adenocarcinoma
     Dosage: 1 DOSAGE FORM (EVERY 15 DAY)
     Route: 042
     Dates: start: 20220824, end: 20221005
  5. TRAMADOL HYDROCHLORIDE [Concomitant]
     Active Substance: TRAMADOL HYDROCHLORIDE
     Indication: Product used for unknown indication
     Dosage: UNK
     Route: 065

REACTIONS (1)
  - Diabetes mellitus [Not Recovered/Not Resolved]

NARRATIVE: CASE EVENT DATE: 20221005
